FAERS Safety Report 15551142 (Version 3)
Quarter: 2018Q4

REPORT INFORMATION
  Report Type: Report from Study
  Country: JP (occurrence: JP)
  Receive Date: 20181025
  Receipt Date: 20181029
  Transmission Date: 20190205
  Serious: Yes (Death)
  Sender: FDA-Public Use
  Company Number: JP-PFIZER INC-2018435821

PATIENT

DRUGS (3)
  1. 5-FLUOROURACIL [FLUOROURACIL] [Suspect]
     Active Substance: FLUOROURACIL
     Indication: OESOPHAGEAL CARCINOMA
     Dosage: 750 MG/M2/DAY ON DAYS 1-5; CHEMOTHERAPY REGIMEN WAS REPEATED EVERY THREE WEEKS, 2 CYCLES
     Route: 041
  2. DOCETAXEL. [Suspect]
     Active Substance: DOCETAXEL
     Indication: OESOPHAGEAL CARCINOMA
     Dosage: 70 MG/M2, 1-H INTRAVENOUS (I.V.) INFUSION, REPEATED EVERY THREE WEEKS, 2 CYCLES
     Route: 041
  3. CISPLATIN. [Suspect]
     Active Substance: CISPLATIN
     Indication: OESOPHAGEAL CARCINOMA
     Dosage: 70 MG/M2, 2-H INFUSION, ON DAY 1; CHEMOTHERAPY REGIMEN WAS REPEATED EVERY THREE WEEKS, 2 CYCLES
     Route: 050

REACTIONS (1)
  - Cardiac arrest [Fatal]
